FAERS Safety Report 20678246 (Version 1)
Quarter: 2022Q2

REPORT INFORMATION
  Report Type: Spontaneous
  Country: US (occurrence: US)
  Receive Date: 20220406
  Receipt Date: 20220406
  Transmission Date: 20220721
  Serious: No
  Sender: FDA-Public Use
  Company Number: US-ALLERGAN-2206957US

PATIENT
  Age: 55 Year
  Sex: Female

DRUGS (2)
  1. QULIPTA [Suspect]
     Active Substance: ATOGEPANT
     Indication: Migraine prophylaxis
     Dosage: 60 MG, QAM
     Dates: start: 202112, end: 202202
  2. TOPAMAX [Concomitant]
     Active Substance: TOPIRAMATE
     Indication: Migraine prophylaxis
     Dosage: 100 MG, QPM

REACTIONS (2)
  - Irritability [Recovered/Resolved]
  - Agitation [Recovered/Resolved]

NARRATIVE: CASE EVENT DATE: 20220101
